FAERS Safety Report 9891435 (Version 1)
Quarter: 2014Q1

REPORT INFORMATION
  Report Type: Spontaneous
  Country: US (occurrence: US)
  Receive Date: 20140212
  Receipt Date: 20140212
  Transmission Date: 20141002
  Serious: No
  Sender: FDA-Public Use
  Company Number: US-PFIZER INC-2014038764

PATIENT
  Sex: 0

DRUGS (1)
  1. RELPAX [Suspect]
     Indication: MIGRAINE
     Dosage: UNK

REACTIONS (3)
  - Product packaging issue [Unknown]
  - Anxiety [Unknown]
  - Pain [Unknown]
